FAERS Safety Report 9057967 (Version 1)
Quarter: 2013Q1

REPORT INFORMATION
  Report Type: Spontaneous
  Country: IT (occurrence: IT)
  Receive Date: 20130210
  Receipt Date: 20130210
  Transmission Date: 20140127
  Serious: Yes (Hospitalization)
  Sender: FDA-Public Use
  Company Number: IT-TEVA-383969ISR

PATIENT
  Age: 93 None
  Sex: Female

DRUGS (4)
  1. LORAZEPAM [Suspect]
     Dosage: 5 GTT DAILY;
     Route: 048
     Dates: start: 20111121, end: 20121120
  2. ENAPREN [Suspect]
     Dosage: 20 MILLIGRAM DAILY;
     Route: 048
     Dates: start: 20111121, end: 20121120
  3. NEBILOX [Suspect]
     Dosage: 5 MILLIGRAM DAILY;
     Route: 048
     Dates: start: 20111121, end: 20121120
  4. TICLOPIDINA CLORIDRATO [Concomitant]

REACTIONS (1)
  - Syncope [Recovering/Resolving]
